FAERS Safety Report 22651628 (Version 1)
Quarter: 2023Q2

REPORT INFORMATION
  Report Type: Spontaneous
  Country: US (occurrence: US)
  Receive Date: 20230628
  Receipt Date: 20230628
  Transmission Date: 20230722
  Serious: No
  Sender: FDA-Public Use
  Company Number: US-CTI BIOPHARMA-2023US03477

PATIENT

DRUGS (18)
  1. VONJO [Suspect]
     Active Substance: PACRITINIB
     Indication: Chronic myeloid leukaemia
     Dosage: 200 MG, BID
     Route: 048
     Dates: start: 20230225
  2. VONJO [Suspect]
     Active Substance: PACRITINIB
     Indication: Philadelphia chromosome positive
  3. VONJO [Suspect]
     Active Substance: PACRITINIB
     Indication: Remission not achieved
  4. BOSULIF [Concomitant]
     Active Substance: BOSUTINIB MONOHYDRATE
  5. CALTRATE VIT [Concomitant]
  6. CARDURA [Concomitant]
     Active Substance: DOXAZOSIN MESYLATE
  7. CARVEDILOL [Concomitant]
     Active Substance: CARVEDILOL
  8. ESTRADIOL [Concomitant]
     Active Substance: ESTRADIOL
  9. GLIPIZIDE [Concomitant]
     Active Substance: GLIPIZIDE
  10. HYDROCHLOROTHIAZIDE [Concomitant]
     Active Substance: HYDROCHLOROTHIAZIDE
  11. LASIX [Concomitant]
     Active Substance: FUROSEMIDE
  12. LOSARTAN [Concomitant]
     Active Substance: LOSARTAN
  13. MEVACOR [Concomitant]
     Active Substance: LOVASTATIN
  14. POTASSIUM CHLORIDE [Concomitant]
     Active Substance: POTASSIUM CHLORIDE
  15. SINGULAIR [Concomitant]
     Active Substance: MONTELUKAST SODIUM
  16. VITAMIN B12 [Concomitant]
     Active Substance: CYANOCOBALAMIN
  17. VITAMIN C [Concomitant]
     Active Substance: ASCORBIC ACID
  18. VITAMIN E [Concomitant]
     Active Substance: .ALPHA.-TOCOPHEROL

REACTIONS (6)
  - Platelet count increased [Unknown]
  - Abdominal pain [Unknown]
  - Product dose omission issue [Unknown]
  - Off label use [Unknown]
  - Memory impairment [Unknown]
  - Somnolence [Unknown]
